FAERS Safety Report 20833799 (Version 2)
Quarter: 2022Q2

REPORT INFORMATION
  Report Type: Spontaneous
  Country: CA (occurrence: CA)
  Receive Date: 20220516
  Receipt Date: 20220518
  Transmission Date: 20220721
  Serious: Yes (Other)
  Sender: FDA-Public Use
  Company Number: CA-PFIZER INC-202200699749

PATIENT
  Age: 22 Year
  Sex: Male

DRUGS (4)
  1. METHOTREXATE SODIUM [Suspect]
     Active Substance: METHOTREXATE SODIUM
     Indication: Crohn^s disease
     Dosage: 25 MG, WEEKLY
     Route: 065
     Dates: start: 2016
  2. METHOTREXATE SODIUM [Suspect]
     Active Substance: METHOTREXATE SODIUM
     Dosage: 25 MG WEEKLY
     Route: 065
     Dates: start: 202006
  3. FOLIC ACID [Concomitant]
     Active Substance: FOLIC ACID
     Dosage: UNK
  4. STELARA [Concomitant]
     Active Substance: USTEKINUMAB
     Indication: Crohn^s disease
     Dosage: UNK
     Dates: start: 202006

REACTIONS (11)
  - Faecal calprotectin increased [Unknown]
  - Treatment failure [Unknown]
  - Treatment failure [Unknown]
  - Back pain [Unknown]
  - Musculoskeletal stiffness [Unknown]
  - Dyschezia [Unknown]
  - Arthralgia [Unknown]
  - Spondyloarthropathy [Unknown]
  - Spondylitis [Unknown]
  - Off label use [Unknown]
  - Drug effective for unapproved indication [Unknown]
